FAERS Safety Report 8420752-3 (Version None)
Quarter: 2012Q2

REPORT INFORMATION
  Report Type: 
  Country: None (occurrence: None)
  Receive Date: 20120608
  Receipt Date: 20120605
  Transmission Date: 20120825
  Serious: No
  Sender: FDA-Public Use
  Company Number: US-PFIZER INC-2012135923

PATIENT
  Sex: Female

DRUGS (1)
  1. XALKORI [Suspect]
     Indication: LUNG NEOPLASM MALIGNANT
     Dosage: 400 MG, 1X/DAY
     Dates: start: 20120315

REACTIONS (3)
  - OESOPHAGEAL PAIN [None]
  - DIARRHOEA [None]
  - VISION BLURRED [None]
